FAERS Safety Report 12172224 (Version 2)
Quarter: 2016Q1

REPORT INFORMATION
  Report Type: Report from Study
  Country: BE (occurrence: BE)
  Receive Date: 20160311
  Receipt Date: 20160315
  Transmission Date: 20160526
  Serious: Yes (Death, Hospitalization, Other)
  Sender: FDA-Public Use
  Company Number: BE-BRISTOL-MYERS SQUIBB COMPANY-BMS-2016-017400

PATIENT
  Sex: Male

DRUGS (1)
  1. NIVOLUMAB [Suspect]
     Active Substance: NIVOLUMAB
     Indication: NON-SMALL CELL LUNG CANCER
     Dosage: UNK
     Route: 065
     Dates: end: 20160113

REACTIONS (13)
  - Myocarditis [Unknown]
  - Rash [Unknown]
  - Hepatic function abnormal [Unknown]
  - Anaemia [Unknown]
  - Gastrointestinal haemorrhage [Fatal]
  - Death [Fatal]
  - Optic neuritis [Unknown]
  - Atrioventricular block [Unknown]
  - Cardiac pacemaker insertion [Unknown]
  - Eyelid ptosis [Unknown]
  - Bradycardia [Not Recovered/Not Resolved]
  - Therapeutic embolisation [Unknown]
  - Muscular weakness [Not Recovered/Not Resolved]

NARRATIVE: CASE EVENT DATE: 20160208
